FAERS Safety Report 16761444 (Version 1)
Quarter: 2019Q3

REPORT INFORMATION
  Report Type: Report from Study
  Country: US (occurrence: US)
  Receive Date: 20190830
  Receipt Date: 20190830
  Transmission Date: 20191005
  Serious: Yes (Hospitalization)
  Sender: FDA-Public Use
  Company Number: US-ACTELION-A-NJ2018-178652

PATIENT
  Age: 39 Year
  Sex: Female
  Weight: 94.33 kg

DRUGS (10)
  1. LETAIRIS [Concomitant]
     Active Substance: AMBRISENTAN
     Dosage: 15 NG
     Route: 065
  2. LETAIRIS [Concomitant]
     Active Substance: AMBRISENTAN
     Indication: PULMONARY ARTERIAL HYPERTENSION
     Dosage: 5 MG, QD
     Route: 048
     Dates: start: 20170907
  3. VELETRI [Suspect]
     Active Substance: EPOPROSTENOL
     Indication: PULMONARY ARTERIAL HYPERTENSION
     Dosage: 15 NG/KG, PER MIN
     Route: 042
     Dates: start: 20180831
  4. VELETRI [Suspect]
     Active Substance: EPOPROSTENOL
     Dosage: 4 NG/KG, PER MIN
     Route: 042
     Dates: start: 20180831
  5. VELETRI [Suspect]
     Active Substance: EPOPROSTENOL
     Dosage: 7 NG/KG, PER MIN
     Route: 042
     Dates: start: 20180910
  6. VELETRI [Suspect]
     Active Substance: EPOPROSTENOL
     Dosage: 14 NG/KG, PER MIN
     Route: 042
     Dates: start: 20180831
  7. AMBRISENTAN [Suspect]
     Active Substance: AMBRISENTAN
     Indication: PULMONARY HYPERTENSION
     Dosage: 5 MG, QD
     Route: 065
     Dates: start: 20170906
  8. VELETRI [Suspect]
     Active Substance: EPOPROSTENOL
     Dosage: 8 NG/KG, PER MIN
     Route: 042
  9. VELETRI [Suspect]
     Active Substance: EPOPROSTENOL
     Dosage: 11.5 NG/KG, PER MIN
     Route: 042
     Dates: start: 20180831
  10. VELETRI [Suspect]
     Active Substance: EPOPROSTENOL
     Dosage: 16.3 NG/KG, PER MIN
     Route: 042

REACTIONS (12)
  - Pulmonary arterial pressure abnormal [Unknown]
  - Headache [Unknown]
  - Flushing [Unknown]
  - Dizziness [Unknown]
  - Syncope [Unknown]
  - Pain in jaw [Unknown]
  - Lung transplant [Unknown]
  - Nausea [Recovered/Resolved]
  - Vomiting [Unknown]
  - Dyspnoea exertional [Not Recovered/Not Resolved]
  - Chest pain [Not Recovered/Not Resolved]
  - Diarrhoea [Unknown]

NARRATIVE: CASE EVENT DATE: 20180901
